FAERS Safety Report 8225777-9 (Version None)
Quarter: 2012Q1

REPORT INFORMATION
  Report Type: 
  Country: None (occurrence: None)
  Receive Date: 20120321
  Receipt Date: 20120315
  Transmission Date: 20120608
  Serious: Yes (Other)
  Sender: FDA-Public Use
  Company Number: AR-ELI_LILLY_AND_COMPANY-AR201203005258

PATIENT
  Sex: Female

DRUGS (3)
  1. OLMESARTAN MEDOXOMIL [Concomitant]
     Dosage: UNK
  2. LEVOTHYROXINE SODIUM [Concomitant]
     Dosage: UNK
  3. HUMULIN N [Suspect]

REACTIONS (8)
  - CELLULITIS [None]
  - INFECTION [None]
  - PHARYNGITIS [None]
  - TOOTH INFECTION [None]
  - DRUG DOSE OMISSION [None]
  - BLOOD GLUCOSE INCREASED [None]
  - CONJUNCTIVITIS [None]
  - DYSPHONIA [None]
